FAERS Safety Report 20090663 (Version 2)
Quarter: 2022Q2

REPORT INFORMATION
  Report Type: Report from Study
  Country: DO (occurrence: DO)
  Receive Date: 20211119
  Receipt Date: 20220510
  Transmission Date: 20220721
  Serious: Yes (Other)
  Sender: FDA-Public Use
  Company Number: DO-NOVARTISPH-NVSC2021DO142945

PATIENT
  Age: 60 Year
  Sex: Male

DRUGS (3)
  1. GILENYA [Suspect]
     Active Substance: FINGOLIMOD HYDROCHLORIDE
     Indication: Relapsing-remitting multiple sclerosis
     Dosage: 0.5 MG, QD
     Route: 048
     Dates: start: 20210502
  2. GILENYA [Suspect]
     Active Substance: FINGOLIMOD HYDROCHLORIDE
     Dosage: 0.5 MG, QOD (FROM MONDAY TO FRIDAY 05 DAYS A WEEK)
     Route: 048
     Dates: start: 20210602
  3. GILENYA [Suspect]
     Active Substance: FINGOLIMOD HYDROCHLORIDE
     Dosage: 0.5 MG (MONDAY TO FRIDAY)
     Route: 048

REACTIONS (7)
  - Antiphospholipid syndrome [Unknown]
  - Lymphopenia [Recovering/Resolving]
  - Depressed mood [Recovered/Resolved]
  - Chills [Unknown]
  - Alopecia [Unknown]
  - Viral infection [Recovered/Resolved]
  - Lymphocyte count decreased [Recovered/Resolved]

NARRATIVE: CASE EVENT DATE: 20210621
